APPROVED DRUG PRODUCT: ADVIL LIQUI-GELS
Active Ingredient: IBUPROFEN
Strength: EQ 200MG FREE ACID AND POTASSIUM SALT
Dosage Form/Route: CAPSULE;ORAL
Application: N020402 | Product #001
Applicant: HALEON US HOLDINGS LLC
Approved: Apr 20, 1995 | RLD: Yes | RS: Yes | Type: OTC